FAERS Safety Report 7635309-1 (Version None)
Quarter: 2011Q3

REPORT INFORMATION
  Report Type: 
  Country: None (occurrence: None)
  Receive Date: 20110718
  Receipt Date: 20110701
  Transmission Date: 20111222
  Serious: Yes (Life-Threatening, Other)
  Sender: FDA-Public Use
  Company Number: AUR-APL-2011-04010

PATIENT
  Age: 85 Year
  Sex: Female
  Weight: 49 kg

DRUGS (5)
  1. ALENDRONATE SODIUM [Suspect]
     Indication: OSTEOPOROSIS
     Dosage: 70 MG, ORAL
     Route: 048
     Dates: start: 20080101, end: 20110606
  2. SPIRIVA [Concomitant]
  3. METOCLOPRAMIDE [Concomitant]
  4. SYMBICORT [Concomitant]
  5. OMEPRAZOLE [Concomitant]

REACTIONS (1)
  - TRACHEO-OESOPHAGEAL FISTULA [None]
